FAERS Safety Report 11240178 (Version 1)
Quarter: 2015Q3

REPORT INFORMATION
  Report Type: Spontaneous
  Country: US (occurrence: None)
  Receive Date: 20150701
  Receipt Date: 20150701
  Transmission Date: 20151125
  Serious: Yes (Hospitalization)
  Sender: FDA-Public Use
  Company Number: None

PATIENT
  Age: 70 Year
  Sex: Male
  Weight: 90.9 kg

DRUGS (2)
  1. VALSARTAN. [Suspect]
     Active Substance: VALSARTAN
     Route: 048
  2. MITOMYCIN. [Suspect]
     Active Substance: MITOMYCIN
     Indication: SURGERY
     Dates: start: 20150326, end: 20150327

REACTIONS (4)
  - Dysphagia [None]
  - Dyspnoea [None]
  - Angioedema [None]
  - Local swelling [None]

NARRATIVE: CASE EVENT DATE: 20150327
